FAERS Safety Report 10240270 (Version 2)
Quarter: 2014Q3

REPORT INFORMATION
  Report Type: Report from Study
  Country: DE (occurrence: DE)
  Receive Date: 20140617
  Receipt Date: 20140702
  Transmission Date: 20150326
  Serious: Yes (Death)
  Sender: FDA-Public Use
  Company Number: PHHY2014DE073816

PATIENT
  Age: 74 Year
  Sex: Female
  Weight: 47 kg

DRUGS (11)
  1. ICL670A [Suspect]
     Active Substance: DEFERASIROX
     Indication: IRON OVERLOAD
  2. LITALIR [Concomitant]
     Active Substance: HYDROXYUREA
     Indication: MYELOFIBROSIS
     Dosage: 1500 MG, DAILY
     Dates: start: 19900420
  3. METOPROLOL [Concomitant]
     Active Substance: METOPROLOL
     Indication: HYPERTENSION
     Dosage: 47.5 MG, DAILY
     Dates: start: 1999
  4. FALITHROM [Concomitant]
     Active Substance: PHENPROCOUMON
     Indication: ATRIAL FIBRILLATION
     Dosage: 1.5 MG, DAILY DEPENDING ON INR
  5. CANDESARTAN [Concomitant]
     Active Substance: CANDESARTAN
     Dosage: 4 MG, DAILY
  6. SIMVABETA [Concomitant]
     Active Substance: SIMVASTATIN
     Dosage: 20 MG, DAILY
  7. ICL670A [Suspect]
     Active Substance: DEFERASIROX
     Indication: SERUM FERRITIN DECREASED
     Dosage: 500 MG (10 MG/KG), DAILY
     Route: 048
     Dates: start: 20140108, end: 20140324
  8. TILIDIN [Concomitant]
     Active Substance: NALOXONE HYDROCHLORIDE\TILIDINE HYDROCHLORIDE
  9. ICL670A [Suspect]
     Active Substance: DEFERASIROX
     Indication: MYELOPROLIFERATIVE DISORDER
  10. OMEPRAZOLE. [Concomitant]
     Active Substance: OMEPRAZOLE
     Dosage: 20 MG, DAILY
  11. ERYTHROCYTES [Concomitant]
     Active Substance: HUMAN RED BLOOD CELL
     Dosage: 4 U, QMO

REACTIONS (3)
  - General physical health deterioration [Recovered/Resolved]
  - Weight decreased [Recovered/Resolved]
  - Tumour necrosis [Fatal]

NARRATIVE: CASE EVENT DATE: 20140219
